FAERS Safety Report 25304431 (Version 1)
Quarter: 2025Q2

REPORT INFORMATION
  Report Type: Spontaneous
  Country: US (occurrence: None)
  Receive Date: 20250512
  Receipt Date: 20250512
  Transmission Date: 20250717
  Serious: No
  Sender: FDA-CTU
  Company Number: None

PATIENT
  Age: 60 Year
  Sex: Female
  Weight: 47.25 kg

DRUGS (1)
  1. CEQUA [Suspect]
     Active Substance: CYCLOSPORINE
     Indication: Eye disorder
     Dosage: 1 DROP(S) TWICE  DAY OPHTHALMIC
     Route: 047
     Dates: start: 20250511, end: 20250512

REACTIONS (1)
  - Instillation site pain [None]

NARRATIVE: CASE EVENT DATE: 20250512
